FAERS Safety Report 10217055 (Version 1)
Quarter: 2014Q2

REPORT INFORMATION
  Report Type: Spontaneous
  Country: PT (occurrence: PT)
  Receive Date: 20140604
  Receipt Date: 20140604
  Transmission Date: 20141212
  Serious: Yes (Other)
  Sender: FDA-Public Use
  Company Number: PT-009507513-1406PRT000424

PATIENT
  Age: 7 Year
  Sex: Male

DRUGS (15)
  1. FELBAMATE [Suspect]
     Indication: STATUS EPILEPTICUS
     Route: 048
  2. LEVETIRACETAM [Suspect]
     Indication: STATUS EPILEPTICUS
  3. PHENYTOIN [Suspect]
     Indication: STATUS EPILEPTICUS
  4. PHENOBARBITAL [Suspect]
     Indication: STATUS EPILEPTICUS
  5. VALPROIC ACID [Suspect]
     Indication: STATUS EPILEPTICUS
  6. VIGABATRIN [Suspect]
     Indication: STATUS EPILEPTICUS
  7. CARBAMAZEPINE [Suspect]
     Indication: STATUS EPILEPTICUS
  8. LAMOTRIGINE [Suspect]
     Indication: STATUS EPILEPTICUS
  9. ZONISAMIDE [Suspect]
     Indication: STATUS EPILEPTICUS
  10. PROPOFOL [Concomitant]
  11. MIDAZOLAM [Concomitant]
  12. THIOPENTAL SODIUM [Concomitant]
  13. METHYLPREDNISOLONE [Concomitant]
  14. GLOBULIN, IMMUNE [Concomitant]
  15. RITUXIMAB [Concomitant]

REACTIONS (2)
  - Brain lobectomy [Recovering/Resolving]
  - Drug ineffective [Recovering/Resolving]
